FAERS Safety Report 4557612-4 (Version None)
Quarter: 2005Q1

REPORT INFORMATION
  Report Type: 
  Country: None (occurrence: None)
  Receive Date: 20050120
  Receipt Date: 20050110
  Transmission Date: 20050727
  Serious: Yes (Death, Life-Threatening, Hospitalization, Disabling)
  Sender: FDA-Public Use
  Company Number: US-MERCK-0501USA00814

PATIENT
  Age: 67 Year
  Sex: Male

DRUGS (5)
  1. VIOXX [Suspect]
     Indication: PAIN
     Route: 048
     Dates: start: 20030101
  2. PRILOSEC [Concomitant]
     Route: 048
  3. NEXIUM [Concomitant]
     Route: 065
  4. ATIVAN [Concomitant]
     Route: 065
  5. RESTROL [Concomitant]
     Route: 065

REACTIONS (3)
  - ACUTE RESPIRATORY FAILURE [None]
  - HEPATIC NEOPLASM MALIGNANT [None]
  - NEOPLASM MALIGNANT [None]
